FAERS Safety Report 5764156-0 (Version None)
Quarter: 2008Q2

REPORT INFORMATION
  Report Type: 
  Country: None (occurrence: None)
  Receive Date: 20080609
  Receipt Date: 20080404
  Transmission Date: 20081010
  Serious: No
  Sender: FDA-Public Use
  Company Number: 002#02#2008-00288

PATIENT
  Age: 74 Year
  Sex: Male
  Weight: 77.1115 kg

DRUGS (3)
  1. NEUPRO [Suspect]
     Indication: PARKINSON'S DISEASE
     Dosage: 4MG/24H, 1 IN 1 D, TRANSDERMAL
     Route: 062
     Dates: start: 20070101
  2. LOTRISONE [Concomitant]
  3. PRILOSEC [Concomitant]

REACTIONS (1)
  - RASH ERYTHEMATOUS [None]
